FAERS Safety Report 14151679 (Version 3)
Quarter: 2019Q1

REPORT INFORMATION
  Report Type: Report from Study
  Country: US (occurrence: US)
  Receive Date: 20171102
  Receipt Date: 20190315
  Transmission Date: 20190417
  Serious: Yes (Other)
  Sender: FDA-Public Use
  Company Number: US-TESARO, INC.-US-2017TSO03415

PATIENT
  Sex: Female
  Weight: 120 kg

DRUGS (2)
  1. ZEJULA [Suspect]
     Active Substance: NIRAPARIB
     Dosage: 200 MG, QD
     Route: 065
  2. ZEJULA [Suspect]
     Active Substance: NIRAPARIB
     Indication: OVARIAN CANCER
     Dosage: 300 MG, QD
     Route: 048
     Dates: start: 20170728

REACTIONS (7)
  - Fatigue [Not Recovered/Not Resolved]
  - Anaemia [Recovering/Resolving]
  - Nasal congestion [Unknown]
  - Dyspnoea paroxysmal nocturnal [Unknown]
  - Sinusitis [Not Recovered/Not Resolved]
  - Dyspnoea [Recovering/Resolving]
  - Laboratory test abnormal [Not Recovered/Not Resolved]
